FAERS Safety Report 13186589 (Version 1)
Quarter: 2017Q1

REPORT INFORMATION
  Report Type: Spontaneous
  Country: US (occurrence: US)
  Receive Date: 20170205
  Receipt Date: 20170205
  Transmission Date: 20170428
  Serious: No
  Sender: FDA-Public Use
  Company Number: US-ENDO PHARMACEUTICALS INC-2016SCPR015729

PATIENT

DRUGS (1)
  1. CABERGOLINE. [Suspect]
     Active Substance: CABERGOLINE
     Indication: PROLACTIN-PRODUCING PITUITARY TUMOUR
     Dosage: 0.125 MG (QUARTER OF THE TABLET), BID
     Route: 048
     Dates: start: 2016, end: 20160731

REACTIONS (4)
  - Asthma [Recovered/Resolved]
  - Headache [Recovered/Resolved]
  - Peripheral swelling [Unknown]
  - Reaction to drug excipients [Unknown]

NARRATIVE: CASE EVENT DATE: 2016
